FAERS Safety Report 15267916 (Version 1)
Quarter: 2018Q3

REPORT INFORMATION
  Report Type: Spontaneous
  Country: US (occurrence: US)
  Receive Date: 20180725
  Receipt Date: 20180725
  Transmission Date: 20181010
  Serious: Yes (Other)
  Sender: FDA-Public Use
  Company Number: None

PATIENT
  Age: 26 Year
  Sex: Female
  Weight: 67.5 kg

DRUGS (1)
  1. CIPROFLOXACIN. [Suspect]
     Active Substance: CIPROFLOXACIN
     Indication: URINARY TRACT INFECTION
     Route: 048
     Dates: start: 20140720, end: 20140721

REACTIONS (5)
  - Therapy cessation [None]
  - Anxiety [None]
  - Panic attack [None]
  - Muscle twitching [None]
  - Muscle tightness [None]

NARRATIVE: CASE EVENT DATE: 20140720
